FAERS Safety Report 13457020 (Version 3)
Quarter: 2017Q2

REPORT INFORMATION
  Report Type: Spontaneous
  Country: JP (occurrence: JP)
  Receive Date: 20170419
  Receipt Date: 20170629
  Transmission Date: 20170830
  Serious: Yes (Death, Hospitalization)
  Sender: FDA-Public Use
  Company Number: JP-EISAI MEDICAL RESEARCH-EC-2017-026710

PATIENT
  Age: 85 Year
  Sex: Female

DRUGS (2)
  1. LENVIMA [Suspect]
     Active Substance: LENVATINIB
     Route: 048
     Dates: start: 20170324, end: 20170407
  2. LENVIMA [Suspect]
     Active Substance: LENVATINIB
     Indication: THYROID CANCER
     Route: 048
     Dates: end: 20170310

REACTIONS (4)
  - White blood cell count increased [Unknown]
  - Malignant neoplasm progression [Fatal]
  - C-reactive protein increased [Unknown]
  - Proteinuria [Unknown]

NARRATIVE: CASE EVENT DATE: 20170310
